FAERS Safety Report 6983986-0 (Version None)
Quarter: 2010Q3

REPORT INFORMATION
  Report Type: 
  Country: None (occurrence: None)
  Receive Date: 20100915
  Receipt Date: 20090616
  Transmission Date: 20110219
  Serious: No
  Sender: FDA-Public Use
  Company Number: US-WYE-H09240509

PATIENT
  Sex: Female
  Weight: 90.8 kg

DRUGS (2)
  1. PRISTIQ [Suspect]
     Indication: MOOD SWINGS
     Route: 048
     Dates: start: 20090504
  2. PRISTIQ [Suspect]
     Indication: HOT FLUSH

REACTIONS (1)
  - MIDDLE INSOMNIA [None]
